FAERS Safety Report 16636981 (Version 6)
Quarter: 2020Q3

REPORT INFORMATION
  Report Type: Spontaneous
  Country: AT (occurrence: AT)
  Receive Date: 20190726
  Receipt Date: 20200131
  Transmission Date: 20201105
  Serious: Yes (Death, Life-Threatening, Hospitalization, Other)
  Sender: FDA-Public Use
  Company Number: AT-NOVOPROD-674393

PATIENT
  Age: 31 Year
  Sex: Male

DRUGS (19)
  1. AMFETAMINIL [Concomitant]
     Indication: PRODUCT USED FOR UNKNOWN INDICATION
     Dosage: UNK
     Route: 065
  2. NORDITROPIN [Suspect]
     Active Substance: SOMATROPIN
     Indication: INTENTIONAL PRODUCT MISUSE
     Dosage: 16 ? 24 IU
     Route: 065
  3. LASIX M [Suspect]
     Active Substance: FUROSEMIDE
     Indication: INTENTIONAL PRODUCT MISUSE
     Dosage: UNK
     Route: 065
  4. PARABOLAN [Suspect]
     Active Substance: TRENBOLONE
     Indication: INTENTIONAL PRODUCT MISUSE
     Dosage: 2 INJECTIONS
     Route: 065
  5. NUTROPIN [Suspect]
     Active Substance: SOMATROPIN
     Indication: INTENTIONAL PRODUCT MISUSE
     Dosage: 16 ?24 IU, QD
     Route: 065
  6. VALIUM [Suspect]
     Active Substance: DIAZEPAM
     Indication: INTENTIONAL PRODUCT MISUSE
     Dosage: UNK
     Route: 065
  7. STROMBA [Suspect]
     Active Substance: STANOZOLOL
     Indication: INTENTIONAL PRODUCT MISUSE
     Dosage: 50 ? 80 TABLETS
     Route: 048
  8. HALOTESTIN [Suspect]
     Active Substance: FLUOXYMESTERONE
     Indication: INTENTIONAL PRODUCT MISUSE
     Dosage: 30 ? 40 TABLETS
     Route: 048
  9. ALDACTONE [Suspect]
     Active Substance: SPIRONOLACTONE
     Indication: INTENTIONAL PRODUCT MISUSE
     Dosage: UNK
     Route: 065
  10. TESTOVIRON [TESTOSTERONE PROPIONATE] [Suspect]
     Active Substance: TESTOSTERONE PROPIONATE
     Indication: INTENTIONAL PRODUCT MISUSE
     Dosage: 250 MG
     Route: 065
  11. DROSTANOLONE PROPIONATE [Suspect]
     Active Substance: DROMOSTANOLONE PROPIONATE
     Indication: INTENTIONAL PRODUCT MISUSE
     Dosage: 2 INJECTIONS
     Route: 065
  12. CAPTAGON [Suspect]
     Active Substance: FENETHYLLINE HYDROCHLORIDE
     Indication: INTENTIONAL PRODUCT MISUSE
     Dosage: UNK
     Route: 065
  13. WINSTROL [Suspect]
     Active Substance: STANOZOLOL
     Indication: INTENTIONAL PRODUCT MISUSE
     Dosage: 2 DF
     Route: 065
  14. CLENBUTEROL [Suspect]
     Active Substance: CLENBUTEROL
     Indication: INTENTIONAL PRODUCT MISUSE
     Dosage: UNK
     Route: 065
  15. METANDIENONE [Suspect]
     Active Substance: METHANDROSTENOLONE
     Indication: INTENTIONAL PRODUCT MISUSE
     Dosage: UNK
     Route: 065
  16. STROMBA [Suspect]
     Active Substance: STANOZOLOL
     Indication: INTENTIONAL PRODUCT MISUSE
     Dosage: 2 INJECTIONS
     Route: 065
  17. EPHEDRINE. [Suspect]
     Active Substance: EPHEDRINE
     Indication: INTENTIONAL PRODUCT MISUSE
     Dosage: UNK
     Route: 065
  18. ASPIRIN BAYER [Suspect]
     Active Substance: ASPIRIN
     Indication: INTENTIONAL PRODUCT MISUSE
     Dosage: UNK
     Route: 065
  19. MASTERON [Suspect]
     Active Substance: DROMOSTANOLONE PROPIONATE
     Indication: INTENTIONAL PRODUCT MISUSE
     Dosage: 2 DF, QD
     Route: 065

REACTIONS (7)
  - Hepatic neoplasm [Fatal]
  - Multiple organ dysfunction syndrome [Fatal]
  - Intra-abdominal haemorrhage [Fatal]
  - Toxicity to various agents [Fatal]
  - Poisoning [Fatal]
  - Drug abuse [Fatal]
  - Intentional product misuse [Fatal]
